FAERS Safety Report 13057999 (Version 1)
Quarter: 2016Q4

REPORT INFORMATION
  Report Type: Spontaneous
  Country: MK (occurrence: MK)
  Receive Date: 20161223
  Receipt Date: 20161223
  Transmission Date: 20170207
  Serious: Yes (Hospitalization)
  Sender: FDA-Public Use
  Company Number: MK-GLENMARK PHARMACEUTICALS INC, USA.-2016GMK025457

PATIENT
  Age: 27 Year
  Sex: Female
  Weight: 55 kg

DRUGS (2)
  1. VERAPAMIL [Suspect]
     Active Substance: VERAPAMIL HYDROCHLORIDE
     Indication: PRODUCT USED FOR UNKNOWN INDICATION
     Dosage: 24 G (100 PILLS), UNK
     Route: 065
  2. FUROSEMIDE. [Suspect]
     Active Substance: FUROSEMIDE
     Indication: PRODUCT USED FOR UNKNOWN INDICATION
     Dosage: 4 G, 10 PILLS
     Route: 065

REACTIONS (6)
  - Atrioventricular block second degree [Recovered/Resolved]
  - Suicide attempt [Unknown]
  - Electrocardiogram QRS complex prolonged [Recovered/Resolved]
  - Atrioventricular block first degree [Recovered/Resolved]
  - Hypotension [Recovered/Resolved]
  - Overdose [Unknown]
